FAERS Safety Report 8028747 (Version 2)
Quarter: 2013Q1

REPORT INFORMATION
  Report Type: Spontaneous
  Country: US (occurrence: US)
  Receive Date: 20110711
  Receipt Date: 20130111
  Transmission Date: 20140127
  Serious: Yes (Other)
  Sender: FDA-Public Use
  Company Number: US-ELI_LILLY_AND_COMPANY-US201107000231

PATIENT
  Sex: Male

DRUGS (2)
  1. HUMATROPE [Suspect]
     Indication: HYPOPITUITARISM
     Dosage: 0.4 MG, QD
  2. HUMATROPE [Suspect]
     Dosage: 0.6 MG, QD

REACTIONS (3)
  - Arthritis [Unknown]
  - Joint injury [Unknown]
  - Asthenia [Recovering/Resolving]
